FAERS Safety Report 18977764 (Version 1)
Quarter: 2021Q1

REPORT INFORMATION
  Report Type: Spontaneous
  Country: US (occurrence: US)
  Receive Date: 20210306
  Receipt Date: 20210306
  Transmission Date: 20210420
  Serious: No
  Sender: FDA-Public Use
  Company Number: US-SUN PHARMACEUTICAL INDUSTRIES LTD-2020R1-269167

PATIENT

DRUGS (4)
  1. CEQUA [Suspect]
     Active Substance: CYCLOSPORINE
     Indication: CORNEAL INFILTRATES
     Dosage: UNK
     Route: 047
  2. CEQUA [Suspect]
     Active Substance: CYCLOSPORINE
     Indication: ALLERGIC KERATITIS
  3. CEQUA [Suspect]
     Active Substance: CYCLOSPORINE
     Indication: VERNAL KERATOCONJUNCTIVITIS
  4. CEQUA [Suspect]
     Active Substance: CYCLOSPORINE
     Indication: ADENOVIRAL CONJUNCTIVITIS

REACTIONS (1)
  - Off label use [Unknown]
